FAERS Safety Report 4702631-8 (Version None)
Quarter: 2005Q2

REPORT INFORMATION
  Report Type: 
  Country: None (occurrence: None)
  Receive Date: 20050629
  Receipt Date: 20040601
  Transmission Date: 20051028
  Serious: No
  Sender: FDA-Public Use
  Company Number: US-GLAXOSMITHKLINE-A0512884A

PATIENT

DRUGS (1)
  1. ZYBAN [Suspect]

REACTIONS (2)
  - AGITATION [None]
  - INSOMNIA [None]
